FAERS Safety Report 20675363 (Version 2)
Quarter: 2025Q3

REPORT INFORMATION
  Report Type: Spontaneous
  Country: DZ (occurrence: DZ)
  Receive Date: 20220405
  Receipt Date: 20250813
  Transmission Date: 20251021
  Serious: No
  Sender: BIOVITRUM
  Company Number: DZ-BIOVITRUM-2020DZ1159

PATIENT
  Age: 10 Month
  Sex: Male
  Weight: 8 kg

DRUGS (2)
  1. ORFADIN [Suspect]
     Active Substance: NITISINONE
     Indication: Tyrosinaemia
  2. ZINC [Concomitant]
     Active Substance: ZINC
     Indication: Product used for unknown indication

REACTIONS (1)
  - Dermatitis diaper [Unknown]

NARRATIVE: CASE EVENT DATE: 20191001
